FAERS Safety Report 7056464-0 (Version None)
Quarter: 2010Q4

REPORT INFORMATION
  Report Type: 
  Country: None (occurrence: None)
  Receive Date: 20101021
  Receipt Date: 20101014
  Transmission Date: 20110411
  Serious: Yes (Hospitalization)
  Sender: FDA-Public Use
  Company Number: DE-PFIZER INC-2010130258

PATIENT
  Sex: Male
  Weight: 140 kg

DRUGS (2)
  1. AMLODIPINE BESYLATE [Suspect]
     Indication: HYPERTENSION
     Dosage: 10 MG, UNK
  2. AMLODIPINE/ HYDROCHLOROTHIAZIDE/ VALSARTAN [Interacting]
     Indication: HYPERTENSION
     Dosage: 10MG/25MG/320MG
     Dates: start: 20100804

REACTIONS (3)
  - DRUG ADMINISTRATION ERROR [None]
  - DRUG INTERACTION [None]
  - HAEMOLYTIC ANAEMIA [None]
